FAERS Safety Report 16824518 (Version 1)
Quarter: 2019Q3

REPORT INFORMATION
  Report Type: Report from Study
  Country: JP (occurrence: JP)
  Receive Date: 20190918
  Receipt Date: 20190918
  Transmission Date: 20191005
  Serious: Yes (Other)
  Sender: FDA-Public Use
  Company Number: JP-BAUSCH-BL-2019-026196

PATIENT
  Age: 43 Year
  Sex: Female
  Weight: 62 kg

DRUGS (9)
  1. THYRADIN [Concomitant]
     Active Substance: LEVOTHYROXINE
     Indication: PROPHYLAXIS
  2. TARGRETIN [Suspect]
     Active Substance: BEXAROTENE
     Dosage: DOSE INCREASED TO 75 MG 5X/DAY
     Route: 048
     Dates: start: 20181002
  3. TARGRETIN [Suspect]
     Active Substance: BEXAROTENE
     Indication: CUTANEOUS T-CELL LYMPHOMA
     Dosage: DOSE: 75 MG 3X/DAY
     Route: 048
     Dates: start: 20171211, end: 20180121
  4. TARGRETIN [Suspect]
     Active Substance: BEXAROTENE
     Dosage: DOSE INCREASED 75 MG 7X/DAY
     Route: 048
     Dates: end: 20190429
  5. TARGRETIN [Suspect]
     Active Substance: BEXAROTENE
     Dosage: DOSE DECREASED TO 75 MG 5X/DAY
     Route: 048
     Dates: start: 20190430, end: 20190819
  6. DERMOVATE [Concomitant]
     Active Substance: CLOBETASOL
     Indication: PRODUCT USED FOR UNKNOWN INDICATION
  7. TARGRETIN [Suspect]
     Active Substance: BEXAROTENE
     Dosage: DOSE INCREASED TO 75 MG 4X/DAY
     Route: 048
     Dates: start: 20180122, end: 20181001
  8. TALION OD [Concomitant]
     Active Substance: BEPOTASTINE BESYLATE
     Indication: PRODUCT USED FOR UNKNOWN INDICATION
  9. XYZAL [Concomitant]
     Active Substance: LEVOCETIRIZINE DIHYDROCHLORIDE
     Indication: PRODUCT USED FOR UNKNOWN INDICATION

REACTIONS (3)
  - Hypothyroidism [Not Recovered/Not Resolved]
  - Malignant neoplasm progression [Not Recovered/Not Resolved]
  - Hypertriglyceridaemia [Not Recovered/Not Resolved]

NARRATIVE: CASE EVENT DATE: 20171218
